FAERS Safety Report 13622072 (Version 1)
Quarter: 2017Q2

REPORT INFORMATION
  Report Type: Spontaneous
  Country: US (occurrence: US)
  Receive Date: 20170607
  Receipt Date: 20170607
  Transmission Date: 20170830
  Serious: No
  Sender: FDA-Public Use
  Company Number: US-ROCHE-783020

PATIENT
  Sex: Male

DRUGS (6)
  1. GENERIC COMPONENT(S) NOT KNOWN [Concomitant]
     Active Substance: UNSPECIFIED INGREDIENT
     Dosage: GS1937 (GILEAD)-STUDY DRUG FOR 2 YEARS.
     Route: 065
  2. PREZISTA [Concomitant]
     Active Substance: DARUNAVIR ETHANOLATE
     Route: 065
  3. TRUVADA [Concomitant]
     Active Substance: EMTRICITABINE\TENOFOVIR DISOPROXIL FUMARATE
     Route: 065
  4. FUZEON [Suspect]
     Active Substance: ENFUVIRTIDE
     Indication: HIV INFECTION
     Dosage: DOSE: 90 TWICE DAILY. DOSAGE FORM: VIAL.
     Route: 058
  5. ACYCLOVIR. [Concomitant]
     Active Substance: ACYCLOVIR
     Route: 065
  6. NORVIR [Concomitant]
     Active Substance: RITONAVIR
     Dosage: DRUG: NOVIR
     Route: 065

REACTIONS (1)
  - Product quality issue [Unknown]
